FAERS Safety Report 10849661 (Version 1)
Quarter: 2015Q1

REPORT INFORMATION
  Report Type: Spontaneous
  Country: US (occurrence: US)
  Receive Date: 20150221
  Receipt Date: 20150221
  Transmission Date: 20150721
  Serious: No
  Sender: FDA-Public Use
  Company Number: US-CELGENEUS-163-21880-14045979

PATIENT
  Age: 87 Year
  Sex: Male
  Weight: 75.3 kg

DRUGS (2)
  1. PANTOPRAZOLE [Concomitant]
     Active Substance: PANTOPRAZOLE SODIUM
     Indication: PRODUCT USED FOR UNKNOWN INDICATION
     Route: 065
  2. REVLIMID [Suspect]
     Active Substance: LENALIDOMIDE
     Indication: PLASMA CELL MYELOMA
     Dosage: 10 MILLIGRAM
     Route: 048
     Dates: start: 20140403

REACTIONS (5)
  - Decreased appetite [Unknown]
  - Dysgeusia [Unknown]
  - Abdominal pain upper [Unknown]
  - Skin ulcer [Unknown]
  - Chest pain [Unknown]

NARRATIVE: CASE EVENT DATE: 201404
